FAERS Safety Report 5081995-2 (Version None)
Quarter: 2006Q3

REPORT INFORMATION
  Report Type: 
  Country: None (occurrence: None)
  Receive Date: 20060811
  Receipt Date: 20060801
  Transmission Date: 20061208
  Serious: Yes (Other)
  Sender: FDA-Public Use
  Company Number: 2006094814

PATIENT
  Age: 29 Year
  Sex: Female

DRUGS (7)
  1. LINEZOLID [Suspect]
     Indication: DISSEMINATED TUBERCULOSIS
     Dosage: 1200 MG (600 MG, 2 IN 1 D); 600 MG (300 MG, 2 IN 1 D)
     Dates: start: 20030201
  2. THIACETAZONE (THIOACETAZONE) [Concomitant]
  3. CLOFAZIMINE (CLOFAZIMINE) [Concomitant]
  4. ENFUVIRTIDE (ENFUVIRTIDE) [Concomitant]
  5. LOPINAVIR (LOPINAVIR) [Concomitant]
  6. RITONAVIR (RITONAVIR) [Concomitant]
  7. ABACAVIR [Concomitant]

REACTIONS (4)
  - ANAEMIA [None]
  - DRUG TOXICITY [None]
  - PANCREATITIS ACUTE [None]
  - PERIPHERAL SENSORIMOTOR NEUROPATHY [None]
